FAERS Safety Report 5116103-2 (Version None)
Quarter: 2006Q3

REPORT INFORMATION
  Report Type: 
  Country: None (occurrence: None)
  Receive Date: 20060927
  Receipt Date: 20060502
  Transmission Date: 20061208
  Serious: No
  Sender: FDA-Public Use
  Company Number: US-BRISTOL-MYERS SQUIBB COMPANY-13364948

PATIENT
  Age: 69 Year
  Sex: Male

DRUGS (1)
  1. DEFINITY [Suspect]
     Route: 042
     Dates: start: 20060501

REACTIONS (2)
  - BACK PAIN [None]
  - RENAL PAIN [None]
